FAERS Safety Report 17870829 (Version 1)
Quarter: 2020Q2

REPORT INFORMATION
  Report Type: Spontaneous
  Country: US (occurrence: US)
  Receive Date: 20200608
  Receipt Date: 20200608
  Transmission Date: 20200714
  Serious: Yes (Other)
  Sender: FDA-Public Use
  Company Number: US-TEVA-2020-US-1245372

PATIENT
  Age: 7 Decade
  Sex: Male

DRUGS (12)
  1. USTEKINUMAB [Concomitant]
     Active Substance: USTEKINUMAB
     Indication: DYSHIDROTIC ECZEMA
     Route: 065
  2. TOFACITINIB [Concomitant]
     Active Substance: TOFACITINIB
     Indication: DYSHIDROTIC ECZEMA
     Route: 065
  3. PREDNISONE. [Suspect]
     Active Substance: PREDNISONE
     Indication: DYSHIDROTIC ECZEMA
     Route: 065
  4. CYCLOSPORINE. [Concomitant]
     Active Substance: CYCLOSPORINE
     Indication: DYSHIDROTIC ECZEMA
     Route: 065
  5. METHOTREXATE. [Concomitant]
     Active Substance: METHOTREXATE
     Indication: DYSHIDROTIC ECZEMA
     Route: 065
  6. DUPILUMAB [Concomitant]
     Active Substance: DUPILUMAB
     Indication: DYSHIDROTIC ECZEMA
     Route: 065
  7. ADALIMUMAB [Suspect]
     Active Substance: ADALIMUMAB
     Indication: DYSHIDROTIC ECZEMA
     Route: 065
  8. AZATHIOPRINE. [Concomitant]
     Active Substance: AZATHIOPRINE
     Indication: DYSHIDROTIC ECZEMA
     Route: 065
  9. DIVALPROEX SODIUM. [Concomitant]
     Active Substance: DIVALPROEX SODIUM
     Indication: DYSHIDROTIC ECZEMA
     Route: 065
  10. IXEKIZUMAB [Concomitant]
     Active Substance: IXEKIZUMAB
     Indication: DYSHIDROTIC ECZEMA
     Route: 065
  11. ACITRETIN. [Concomitant]
     Active Substance: ACITRETIN
     Indication: DYSHIDROTIC ECZEMA
     Route: 065
  12. APREMILAST [Concomitant]
     Active Substance: APREMILAST
     Indication: DYSHIDROTIC ECZEMA
     Route: 065

REACTIONS (4)
  - Unmasking of previously unidentified disease [Recovering/Resolving]
  - Glucose tolerance impaired [Unknown]
  - Osteopenia [Unknown]
  - Cutaneous T-cell lymphoma [Recovering/Resolving]
